FAERS Safety Report 6825020-9 (Version None)
Quarter: 2010Q3

REPORT INFORMATION
  Report Type: 
  Country: None (occurrence: None)
  Receive Date: 20100708
  Receipt Date: 20061201
  Transmission Date: 20110219
  Serious: No
  Sender: FDA-Public Use
  Company Number: US-PFIZER INC-2006151985

PATIENT
  Sex: Female
  Weight: 52.16 kg

DRUGS (3)
  1. CHANTIX [Suspect]
     Indication: SMOKING CESSATION THERAPY
     Dosage: 0.5MG DAILY
     Dates: start: 20061101
  2. PAROXETINE HCL [Concomitant]
     Dates: end: 20060101
  3. CLORAZEPATE DIPOTASSIUM [Concomitant]
     Dates: end: 20060101

REACTIONS (1)
  - NAUSEA [None]
